FAERS Safety Report 9980728 (Version 1)
Quarter: 2014Q1

REPORT INFORMATION
  Report Type: Report from Study
  Country: CA (occurrence: CA)
  Receive Date: 20140307
  Receipt Date: 20140307
  Transmission Date: 20141002
  Serious: Yes (Other)
  Sender: FDA-Public Use
  Company Number: CA-JNJFOC-20140218312

PATIENT
  Age: 43 Year
  Sex: Female
  Weight: 57.5 kg

DRUGS (4)
  1. REMICADE [Suspect]
     Indication: CROHN^S DISEASE
     Route: 042
  2. AZATHIOPRINE [Concomitant]
     Route: 065
  3. CIPRO [Concomitant]
     Route: 065
  4. NUVARING [Concomitant]
     Route: 065

REACTIONS (5)
  - Fistula [Unknown]
  - Oropharyngeal pain [Recovering/Resolving]
  - Sinus headache [Recovering/Resolving]
  - Cough [Recovering/Resolving]
  - Ear discomfort [Recovering/Resolving]
